FAERS Safety Report 5896645-2 (Version None)
Quarter: 2008Q3

REPORT INFORMATION
  Report Type: 
  Country: None (occurrence: None)
  Receive Date: 20080924
  Receipt Date: 20070913
  Transmission Date: 20090109
  Serious: No
  Sender: FDA-Public Use
  Company Number: US-BAYER-200713222BWH

PATIENT
  Age: 48 Year
  Sex: Male

DRUGS (2)
  1. AVELOX [Suspect]
     Indication: PROSTATITIS
     Dosage: TOTAL DAILY DOSE: 400 MG  UNIT DOSE: 400 MG
     Route: 048
  2. CLARITIN [Concomitant]
     Route: 048

REACTIONS (4)
  - HYPERSENSITIVITY [None]
  - PRURITUS [None]
  - SWELLING [None]
  - URTICARIA [None]
